FAERS Safety Report 4999319-5 (Version None)
Quarter: 2006Q2

REPORT INFORMATION
  Report Type: 
  Country: None (occurrence: None)
  Receive Date: 20060511
  Receipt Date: 20060331
  Transmission Date: 20061013
  Serious: Yes (Hospitalization)
  Sender: FDA-Public Use
  Company Number: CH-AVENTIS-200614861GDDC

PATIENT
  Age: 44 Year
  Sex: Female
  Weight: 44 kg

DRUGS (5)
  1. RIMACTANE [Suspect]
     Indication: TUBERCULOSIS
     Route: 048
     Dates: start: 20051215
  2. CELLCEPT [Suspect]
     Indication: SYSTEMIC LUPUS ERYTHEMATOSUS
     Route: 048
     Dates: start: 20051215
  3. TRAMADOL HCL [Concomitant]
     Dates: start: 20051215
  4. PREDNISONE TAB [Concomitant]
     Dates: start: 20051215
  5. FOSAMAX [Concomitant]
     Route: 048

REACTIONS (2)
  - ARTHRALGIA [None]
  - DRUG LEVEL DECREASED [None]
